FAERS Safety Report 15382162 (Version 1)
Quarter: 2018Q3

REPORT INFORMATION
  Report Type: Spontaneous
  Country: CA (occurrence: CA)
  Receive Date: 20180913
  Receipt Date: 20180913
  Transmission Date: 20181010
  Serious: Yes (Death, Hospitalization, Other)
  Sender: FDA-Public Use
  Company Number: CA-PFIZER INC-2003014027

PATIENT
  Age: 22 Year
  Sex: Male

DRUGS (8)
  1. CITALOPRAM [Suspect]
     Active Substance: CITALOPRAM HYDROBROMIDE
     Indication: AGGRESSION
     Dosage: 10 MG, DAILY
     Route: 048
     Dates: start: 20030226, end: 20030228
  2. GABAPENTIN. [Suspect]
     Active Substance: GABAPENTIN
     Indication: AGGRESSION
     Dosage: 300 MG, 2X/DAY
     Route: 048
     Dates: start: 20030114
  3. LOXAPINE HYDROCHLORIDE [Concomitant]
     Active Substance: LOXAPINE HYDROCHLORIDE
     Dosage: UNK
     Route: 048
  4. METHYLPHENIDATE HYDROCHLORIDE. [Concomitant]
     Active Substance: METHYLPHENIDATE HYDROCHLORIDE
     Dosage: 10 MG, UNK
     Route: 048
  5. GABAPENTIN. [Suspect]
     Active Substance: GABAPENTIN
     Indication: EPILEPSY
     Dosage: 600 MG, 3X/DAY
     Route: 048
     Dates: start: 20030306
  6. CITALOPRAM [Suspect]
     Active Substance: CITALOPRAM HYDROBROMIDE
     Dosage: 20 MG, DAILY
     Route: 048
     Dates: start: 20030301
  7. VALPROIC ACID. [Concomitant]
     Active Substance: VALPROIC ACID
     Dosage: UNK
     Route: 048
  8. PROCYCLIDINE [Concomitant]
     Active Substance: PROCYCLIDINE
     Dosage: UNK
     Route: 048

REACTIONS (4)
  - Streptococcal sepsis [Fatal]
  - Type 1 diabetes mellitus [Unknown]
  - Diabetic hyperosmolar coma [Unknown]
  - Rhabdomyolysis [Fatal]

NARRATIVE: CASE EVENT DATE: 200303
